FAERS Safety Report 4979840-6 (Version None)
Quarter: 2006Q2

REPORT INFORMATION
  Report Type: 
  Country: None (occurrence: None)
  Receive Date: 20060421
  Receipt Date: 20051102
  Transmission Date: 20061013
  Serious: Yes (Hospitalization)
  Sender: FDA-Public Use
  Company Number: US-MERCK-0511USA00519

PATIENT
  Age: 70 Year
  Sex: Male
  Weight: 86 kg

DRUGS (6)
  1. VIOXX [Suspect]
     Indication: ARTHRITIS
     Route: 048
     Dates: start: 20000301, end: 20040930
  2. VIOXX [Suspect]
     Indication: BACK PAIN
     Route: 048
     Dates: start: 20000301, end: 20040930
  3. PEPCID [Concomitant]
     Route: 065
  4. PRAVACHOL [Concomitant]
     Route: 065
  5. COUMADIN [Concomitant]
     Route: 065
  6. TYLENOL (CAPLET) [Concomitant]
     Route: 065

REACTIONS (8)
  - ATRIAL SEPTAL DEFECT [None]
  - CARDIAC ANEURYSM [None]
  - CARDIAC DISORDER [None]
  - EMBOLIC CEREBRAL INFARCTION [None]
  - MITRAL VALVE INCOMPETENCE [None]
  - OESOPHAGITIS [None]
  - OSTEOARTHRITIS [None]
  - URETHRAL STENOSIS [None]
